FAERS Safety Report 14554554 (Version 1)
Quarter: 2018Q1

REPORT INFORMATION
  Report Type: Spontaneous
  Country: US (occurrence: US)
  Receive Date: 20180218
  Receipt Date: 20180218
  Transmission Date: 20180509
  Serious: Yes (Disabling, Other)
  Sender: FDA-Public Use
  Company Number: None

PATIENT
  Age: 50 Year
  Sex: Female
  Weight: 70.2 kg

DRUGS (2)
  1. MULTI VITAMIN [Concomitant]
     Active Substance: VITAMINS
  2. INVEGA SUSTENNA [Suspect]
     Active Substance: PALIPERIDONE PALMITATE
     Indication: MENTAL DISORDER
     Dosage: ?          QUANTITY:28 INJECTIONS AND TAB;?
     Dates: start: 20161213, end: 20170106

REACTIONS (18)
  - Insomnia [None]
  - Musculoskeletal disorder [None]
  - Amenorrhoea [None]
  - Quality of life decreased [None]
  - Brain injury [None]
  - Fatigue [None]
  - Libido decreased [None]
  - Feeling abnormal [None]
  - Weight increased [None]
  - Dysphonia [None]
  - Disturbance in attention [None]
  - Bradykinesia [None]
  - Muscular weakness [None]
  - Hypoaesthesia [None]
  - Emotional disorder [None]
  - Learning disorder [None]
  - Decreased activity [None]
  - Reduced facial expression [None]
